FAERS Safety Report 8242986-3 (Version None)
Quarter: 2012Q1

REPORT INFORMATION
  Report Type: 
  Country: None (occurrence: None)
  Receive Date: 20120329
  Receipt Date: 20120326
  Transmission Date: 20120608
  Serious: Yes (Other)
  Sender: FDA-Public Use
  Company Number: US-PFIZER INC-K201100960

PATIENT

DRUGS (1)
  1. THROMBIN-JMI [Suspect]
     Dosage: UNK
     Route: 061
     Dates: start: 20100101

REACTIONS (3)
  - POSTOPERATIVE WOUND INFECTION [None]
  - HAEMATOMA [None]
  - CONTUSION [None]
